FAERS Safety Report 7707228-3 (Version None)
Quarter: 2011Q3

REPORT INFORMATION
  Report Type: 
  Country: None (occurrence: None)
  Receive Date: 20110824
  Receipt Date: 20110812
  Transmission Date: 20111222
  Serious: Yes (Other)
  Sender: FDA-Public Use
  Company Number: PHEH2011US01483

PATIENT
  Sex: Female
  Weight: 124 kg

DRUGS (1)
  1. RECLAST [Suspect]
     Indication: OSTEOPOROSIS
     Dosage: 5 MG/100 ML
     Route: 042
     Dates: start: 20110630

REACTIONS (4)
  - HAEMATOMA [None]
  - NODULE [None]
  - LIPOMA [None]
  - PAIN [None]
